FAERS Safety Report 4723248-5 (Version None)
Quarter: 2005Q3

REPORT INFORMATION
  Report Type: 
  Country: None (occurrence: None)
  Receive Date: 20050719
  Receipt Date: 20040827
  Transmission Date: 20060218
  Serious: Yes (Hospitalization)
  Sender: FDA-Public Use
  Company Number: 203779

PATIENT
  Age: 37 Year
  Sex: Female
  Weight: 79.3795 kg

DRUGS (2)
  1. AVONEX [Suspect]
     Indication: MULTIPLE SCLEROSIS
     Dosage: 30 UG; QW; IM
     Route: 030
     Dates: start: 20020101
  2. BIRTH CONTROL PILLS [Concomitant]

REACTIONS (4)
  - DYSGEUSIA [None]
  - FATIGUE [None]
  - MULTIPLE SCLEROSIS RELAPSE [None]
  - SINUS DISORDER [None]
